FAERS Safety Report 8810897 (Version 2)
Quarter: 2012Q4

REPORT INFORMATION
  Report Type: Spontaneous
  Country: ES (occurrence: None)
  Receive Date: 20120921
  Receipt Date: 20120927
  Transmission Date: 20130627
  Serious: Yes (Disabling)
  Sender: FDA-Public Use
  Company Number: 2012AP003040

PATIENT
  Age: 45 Year
  Sex: Female

DRUGS (2)
  1. LEVETIRACETAM [Suspect]
     Indication: PARTIAL EPILEPSY
  2. CARBAMAZEPINE [Concomitant]

REACTIONS (5)
  - Acute psychosis [None]
  - Irritability [None]
  - Affective disorder [None]
  - Hallucination, auditory [None]
  - Abnormal behaviour [None]
